FAERS Safety Report 4653412-5 (Version None)
Quarter: 2005Q2

REPORT INFORMATION
  Report Type: 
  Country: None (occurrence: None)
  Receive Date: 20050505
  Receipt Date: 20050427
  Transmission Date: 20051028
  Serious: Yes (Other)
  Sender: FDA-Public Use
  Company Number: US-JNJFOC-20050400039

PATIENT
  Sex: Female
  Weight: 50.26 kg

DRUGS (4)
  1. REMICADE [Suspect]
     Indication: CROHN'S DISEASE
     Dosage: ^EVERY 6 TO 8 D^
     Route: 042
  2. IMMUNOSUPPRESSIVE AGENTS [Concomitant]
  3. AZATHIOPRINE [Concomitant]
  4. PENTASA [Concomitant]

REACTIONS (4)
  - DNA ANTIBODY POSITIVE [None]
  - PHOTOSENSITIVITY REACTION [None]
  - ROSACEA [None]
  - SYSTEMIC LUPUS ERYTHEMATOSUS RASH [None]
